FAERS Safety Report 10094622 (Version 2)
Quarter: 2014Q2

REPORT INFORMATION
  Report Type: Spontaneous
  Country: US (occurrence: US)
  Receive Date: 20140422
  Receipt Date: 20140509
  Transmission Date: 20141212
  Serious: No
  Sender: FDA-Public Use
  Company Number: US-PFIZER INC-2014109979

PATIENT
  Age: 68 Year
  Sex: Female
  Weight: 74.38 kg

DRUGS (3)
  1. LYRICA [Suspect]
     Indication: FIBROMYALGIA
     Dosage: 75 MG, 1X/DAY
     Route: 048
     Dates: start: 201311, end: 2014
  2. PRISTIQ [Concomitant]
     Dosage: UNK
  3. ABILIFY [Concomitant]
     Dosage: 2 MG, UNK

REACTIONS (1)
  - Amnesia [Unknown]
